FAERS Safety Report 5777961-1 (Version None)
Quarter: 2008Q2

REPORT INFORMATION
  Report Type: 
  Country: None (occurrence: None)
  Receive Date: 20080617
  Receipt Date: 20080617
  Transmission Date: 20081010
  Serious: Yes (Other)
  Sender: FDA-Public Use
  Company Number: None

PATIENT
  Age: 81 Year
  Sex: Female
  Weight: 68.9467 kg

DRUGS (3)
  1. MUCINEX [Suspect]
     Dosage: 600MG BID PO
     Route: 048
  2. MUCOMYST [Suspect]
     Indication: LIVER DISORDER
     Dosage: 600MG BID PO
     Route: 048
  3. MUCOMYST [Suspect]
     Indication: PROPHYLAXIS
     Dosage: 600MG BID PO
     Route: 048

REACTIONS (2)
  - DRUG DISPENSING ERROR [None]
  - MEDICATION ERROR [None]
